FAERS Safety Report 18418874 (Version 1)
Quarter: 2020Q4

REPORT INFORMATION
  Report Type: Spontaneous
  Country: PL (occurrence: PL)
  Receive Date: 20201023
  Receipt Date: 20201023
  Transmission Date: 20210114
  Serious: Yes (Other)
  Sender: FDA-Public Use
  Company Number: PL-AXELLIA-003447

PATIENT
  Age: 41 Year
  Sex: Female
  Weight: 47.5 kg

DRUGS (4)
  1. VANCOMYCIN [Suspect]
     Active Substance: VANCOMYCIN
     Indication: PRODUCT USED FOR UNKNOWN INDICATION
     Route: 042
     Dates: start: 20180426
  2. RIFAMPICIN [Concomitant]
     Active Substance: RIFAMPIN
     Dosage: DOSE: 2X 600 (UNITS- NOT SPECIFIED)
     Route: 048
     Dates: start: 20180426
  3. WARFIN [Concomitant]
     Active Substance: WARFARIN
     Dosage: DOSE: ACCORDING TO INR
     Route: 048
  4. CEFTRIAXONE. [Concomitant]
     Active Substance: CEFTRIAXONE
     Dosage: DOSE: 2X 1.0 (UNITS- NOT SPECIFIED)
     Route: 042
     Dates: start: 20180426

REACTIONS (3)
  - Red man syndrome [Recovered/Resolved]
  - Feeling hot [Recovered/Resolved]
  - Erythema [Recovered/Resolved]
